FAERS Safety Report 17069684 (Version 2)
Quarter: 2020Q1

REPORT INFORMATION
  Report Type: Report from Study
  Country: US (occurrence: US)
  Receive Date: 20191125
  Receipt Date: 20200310
  Transmission Date: 20200409
  Serious: Yes (Hospitalization)
  Sender: FDA-Public Use
  Company Number: US-HBP-2019US019845

PATIENT
  Sex: Male

DRUGS (1)
  1. VALCHLOR [Suspect]
     Active Substance: MECHLORETHAMINE
     Indication: CUTANEOUS T-CELL LYMPHOMA
     Dosage: THIN FILM, QD
     Route: 061

REACTIONS (2)
  - Medical device site joint infection [Recovered/Resolved]
  - Knee operation [Recovered/Resolved]
